FAERS Safety Report 12775364 (Version 2)
Quarter: 2016Q4

REPORT INFORMATION
  Report Type: Spontaneous
  Country: FR (occurrence: FR)
  Receive Date: 20160923
  Receipt Date: 20161006
  Transmission Date: 20170207
  Serious: Yes (Other)
  Sender: FDA-Public Use
  Company Number: FR-009507513-1608FRA013273

PATIENT
  Age: 26 Year
  Sex: Female
  Weight: 71 kg

DRUGS (1)
  1. IMPLANON [Suspect]
     Active Substance: ETONOGESTREL
     Dosage: UNK
     Route: 059
     Dates: start: 200906

REACTIONS (5)
  - Drug dose omission [Unknown]
  - Complication associated with device [Not Recovered/Not Resolved]
  - Surgery [Unknown]
  - Device difficult to use [Not Recovered/Not Resolved]
  - General anaesthesia [Unknown]

NARRATIVE: CASE EVENT DATE: 20150203
